FAERS Safety Report 7265062-5 (Version None)
Quarter: 2011Q1

REPORT INFORMATION
  Report Type: 
  Country: None (occurrence: None)
  Receive Date: 20110131
  Receipt Date: 20110124
  Transmission Date: 20110831
  Serious: Yes (Other)
  Sender: FDA-Public Use
  Company Number: US-TEVA-264427USA

PATIENT
  Age: 41 Year
  Sex: Female

DRUGS (2)
  1. VINCENTS [Suspect]
     Indication: PAIN
  2. METFORMIN HYDROCHLORIDE [Suspect]
     Indication: TYPE 2 DIABETES MELLITUS

REACTIONS (1)
  - DRUG ERUPTION [None]
